FAERS Safety Report 15341233 (Version 6)
Quarter: 2018Q4

REPORT INFORMATION
  Report Type: Spontaneous
  Country: AR (occurrence: AR)
  Receive Date: 20180831
  Receipt Date: 20181001
  Transmission Date: 20190204
  Serious: Yes (Disabling, Other)
  Sender: FDA-Public Use
  Company Number: PHHY2018AR067317

PATIENT
  Age: 76 Year
  Sex: Female

DRUGS (5)
  1. ALCON LAGRIMA II (ALC) (DEXTRAN 70\HYPROMELLOSE) [Suspect]
     Active Substance: DEXTRAN 70\HYPROMELLOSES
     Indication: SJOGREN^S SYNDROME
     Dosage: UNK
     Route: 047
  2. PLOSTIM [Suspect]
     Active Substance: TIMOLOL MALEATE
     Indication: OPEN ANGLE GLAUCOMA
     Dosage: 2 GTT, QD
     Route: 047
  3. ALCON LAGRIMA II (ALC) (DEXTRAN 70\HYPROMELLOSE) [Suspect]
     Active Substance: DEXTRAN 70\HYPROMELLOSES
     Indication: DRY EYE
  4. ALCON LAGRIMA (ALC) (DEXTRAN 70\HYPROMELLOSE) [Suspect]
     Active Substance: DEXTRAN 70\HYPROMELLOSES
     Indication: EYE LUBRICATION THERAPY
     Dosage: UNK
     Route: 047
     Dates: start: 1980, end: 1990
  5. LOSACOR [Concomitant]
     Active Substance: LOSARTAN POTASSIUM
     Indication: PRODUCT USED FOR UNKNOWN INDICATION
     Route: 065

REACTIONS (21)
  - Glaucoma [Recovering/Resolving]
  - Infarction [Recovered/Resolved]
  - Malaise [Unknown]
  - Dry eye [Unknown]
  - Bronchitis [Unknown]
  - Feeling of despair [Unknown]
  - Cataract [Unknown]
  - Chronic obstructive pulmonary disease [Unknown]
  - Visual impairment [Unknown]
  - Sjogren^s syndrome [Unknown]
  - Ocular hyperaemia [Recovering/Resolving]
  - Cardiac disorder [Unknown]
  - Blindness unilateral [Unknown]
  - Pneumonia [Unknown]
  - Visual field defect [Unknown]
  - Bronchospasm [Unknown]
  - Drug intolerance [Recovering/Resolving]
  - Hypersensitivity [Recovering/Resolving]
  - Angina unstable [Unknown]
  - Transient ischaemic attack [Unknown]
  - Keratitis [Recovering/Resolving]

NARRATIVE: CASE EVENT DATE: 1994
